FAERS Safety Report 23964118 (Version 1)
Quarter: 2024Q2

REPORT INFORMATION
  Report Type: Spontaneous
  Country: US (occurrence: None)
  Receive Date: 20240611
  Receipt Date: 20240611
  Transmission Date: 20240716
  Serious: Yes (Hospitalization)
  Sender: FDA-Public Use
  Company Number: None

PATIENT
  Sex: Female

DRUGS (2)
  1. IBRANCE [Suspect]
     Active Substance: PALBOCICLIB
     Indication: Breast cancer
     Dosage: OTHER FREQUENCY : DAILY21DAYS/OFF7;?
     Route: 048
     Dates: start: 201709
  2. XGEVA SDV [Concomitant]

REACTIONS (3)
  - Mastitis [None]
  - Implant site infection [None]
  - Wound [None]
